FAERS Safety Report 4778599-5 (Version None)
Quarter: 2005Q3

REPORT INFORMATION
  Report Type: 
  Country: None (occurrence: None)
  Receive Date: 20050923
  Receipt Date: 20050909
  Transmission Date: 20060218
  Serious: Yes (Other)
  Sender: FDA-Public Use
  Company Number: CIP05001684

PATIENT
  Age: 75 Year
  Sex: Male

DRUGS (7)
  1. FURADANTIN [Suspect]
     Indication: URINARY TRACT INFECTION
     Dosage: ORAL
     Route: 048
     Dates: start: 20050702, end: 20050705
  2. CIPROFLOXACIN HCL [Suspect]
     Indication: URINARY TRACT INFECTION
     Dosage: ORAL
     Route: 048
     Dates: end: 20050702
  3. HEPARIN [Concomitant]
  4. REQUIP [Concomitant]
  5. MODOPAR (LEVODOPA, BENSERAZIDE HYDROCHLORIDE) [Concomitant]
  6. SELEGILINE HCL [Concomitant]
  7. PROSCAR [Concomitant]

REACTIONS (3)
  - ASTHENIA [None]
  - MYELODYSPLASTIC SYNDROME [None]
  - PANCYTOPENIA [None]
